FAERS Safety Report 21805239 (Version 1)
Quarter: 2023Q1

REPORT INFORMATION
  Report Type: Report from Study
  Country: US (occurrence: US)
  Receive Date: 20230102
  Receipt Date: 20230102
  Transmission Date: 20230417
  Serious: No
  Sender: FDA-Public Use
  Company Number: US-ABBVIE-22K-163-4525807-00

PATIENT
  Age: 45 Year
  Sex: Female
  Weight: 141 kg

DRUGS (5)
  1. HUMIRA [Suspect]
     Active Substance: ADALIMUMAB
     Indication: Rheumatoid arthritis
     Route: 058
  2. ATENOLOL [Concomitant]
     Active Substance: ATENOLOL
     Indication: Hypertension
     Route: 048
  3. MODERNA COVID-19 VACCINE [Concomitant]
     Active Substance: ELASOMERAN
     Indication: COVID-19 immunisation
     Dosage: TIME INTERVAL: 1 TOTAL: ONE IN ONCE
     Route: 030
     Dates: start: 20211109, end: 20211109
  4. MODERNA COVID-19 VACCINE [Concomitant]
     Active Substance: ELASOMERAN
     Indication: COVID-19 immunisation
     Dosage: TIME INTERVAL: 1 TOTAL: ONE IN ONCE
     Route: 030
     Dates: start: 20211211, end: 20211211
  5. TRIAMTERENE [Concomitant]
     Active Substance: TRIAMTERENE
     Indication: Fluid retention
     Dosage: 37.5 MG
     Route: 048

REACTIONS (5)
  - Drug specific antibody [Unknown]
  - Musculoskeletal stiffness [Unknown]
  - Swelling [Unknown]
  - Therapeutic product effect incomplete [Recovered/Resolved]
  - Pain [Unknown]

NARRATIVE: CASE EVENT DATE: 20220601
